FAERS Safety Report 21692106 (Version 2)
Quarter: 2023Q1

REPORT INFORMATION
  Report Type: Spontaneous
  Country: US (occurrence: US)
  Receive Date: 20221207
  Receipt Date: 20230104
  Transmission Date: 20230418
  Serious: No
  Sender: FDA-Public Use
  Company Number: US-JNJFOC-20221151744

PATIENT
  Age: 75 Year
  Sex: Female
  Weight: 64.468 kg

DRUGS (15)
  1. TREMFYA [Suspect]
     Active Substance: GUSELKUMAB
     Indication: Psoriatic arthropathy
     Route: 058
  2. TREMFYA [Suspect]
     Active Substance: GUSELKUMAB
     Indication: Psoriasis
  3. DULOXETINE [Concomitant]
     Active Substance: DULOXETINE
  4. XELJANZ [Concomitant]
     Active Substance: TOFACITINIB CITRATE
  5. VALSARTAN [Concomitant]
     Active Substance: VALSARTAN
  6. METOPROLOL [Concomitant]
     Active Substance: METOPROLOL
  7. ASPIRIN [Concomitant]
     Active Substance: ASPIRIN
  8. FUROSEMIDE [Concomitant]
     Active Substance: FUROSEMIDE
  9. PANTOPRAZOLE [Concomitant]
     Active Substance: PANTOPRAZOLE
  10. ROSUVASTATIN [Concomitant]
     Active Substance: ROSUVASTATIN
  11. VITAMIN D3 [Concomitant]
     Active Substance: CHOLECALCIFEROL
  12. IRON [Concomitant]
     Active Substance: IRON
  13. VITAMIN B12 [HYDROXOCOBALAMIN ACETATE] [Concomitant]
  14. VALIUM [Concomitant]
     Active Substance: DIAZEPAM
  15. PRALUENT [Concomitant]
     Active Substance: ALIROCUMAB

REACTIONS (5)
  - Product administration error [Unknown]
  - Product complaint [Unknown]
  - Product residue present [Unknown]
  - Product dose omission issue [Unknown]
  - Wrong technique in product usage process [Unknown]
